FAERS Safety Report 6025353-2 (Version None)
Quarter: 2008Q4

REPORT INFORMATION
  Report Type: 
  Country: None (occurrence: None)
  Receive Date: 20081231
  Receipt Date: 20081223
  Transmission Date: 20090506
  Serious: Yes (Death)
  Sender: FDA-Public Use
  Company Number: DE-MERCK-0812DEU00340

PATIENT
  Age: 69 Year
  Sex: Female
  Weight: 93 kg

DRUGS (8)
  1. JANUVIA [Suspect]
     Indication: TYPE 2 DIABETES MELLITUS
     Route: 048
     Dates: start: 20080601, end: 20081130
  2. METFORMIN [Concomitant]
     Indication: TYPE 2 DIABETES MELLITUS
     Route: 048
  3. ASPIRIN [Concomitant]
     Route: 048
     Dates: start: 20050401
  4. METOPROLOL SUCCINATE [Concomitant]
     Route: 048
     Dates: start: 20050401
  5. AMLODIPINE [Concomitant]
     Route: 048
     Dates: start: 20070501
  6. SIMVASTATIN [Concomitant]
     Route: 048
     Dates: start: 20070501
  7. TELMISARTAN [Concomitant]
     Route: 048
     Dates: start: 20070501
  8. TORSEMIDE [Concomitant]
     Route: 048
     Dates: start: 20080301

REACTIONS (1)
  - CEREBROVASCULAR ACCIDENT [None]
